FAERS Safety Report 12561389 (Version 2)
Quarter: 2016Q3

REPORT INFORMATION
  Report Type: Report from Study
  Country: MX (occurrence: MX)
  Receive Date: 20160715
  Receipt Date: 20160728
  Transmission Date: 20161109
  Serious: Yes (Hospitalization, Disabling, Other)
  Sender: FDA-Public Use
  Company Number: PHHY2016MX022803

PATIENT
  Age: 56 Year
  Sex: Male
  Weight: 141 kg

DRUGS (1)
  1. CO-DIOVAN [Suspect]
     Active Substance: HYDROCHLOROTHIAZIDE\VALSARTAN
     Indication: HYPERTENSION
     Dosage: 2 DF (HYDROCHLOROTHIAZIDE 12.5 MG AND VALSARTAN 80 MG), QD (15 YEARS AGO)
     Route: 048

REACTIONS (5)
  - Diabetes mellitus [Not Recovered/Not Resolved]
  - Varicose vein [Recovering/Resolving]
  - Inappropriate schedule of drug administration [Not Recovered/Not Resolved]
  - Intervertebral disc protrusion [Recovering/Resolving]
  - Sciatica [Recovering/Resolving]

NARRATIVE: CASE EVENT DATE: 20160119
